FAERS Safety Report 9482842 (Version 1)
Quarter: 2013Q3

REPORT INFORMATION
  Report Type: Spontaneous
  Country: US (occurrence: US)
  Receive Date: 20130828
  Receipt Date: 20130828
  Transmission Date: 20140515
  Serious: Yes (Death)
  Sender: FDA-Public Use
  Company Number: US-AMGEN-KDL236758

PATIENT
  Age: 63 Year
  Sex: Female

DRUGS (5)
  1. PROCRIT [Suspect]
     Indication: ANAEMIA OF MALIGNANT DISEASE
     Dosage: 40000 IU, QWK
     Route: 065
     Dates: end: 20070718
  2. CARBOPLATIN [Concomitant]
     Dosage: UNK UNK, UNK
     Dates: end: 20070718
  3. DOCETAXEL [Concomitant]
     Dosage: UNK UNK, UNK
     Dates: end: 20070718
  4. DEXAMETHASONE [Concomitant]
     Dosage: UNK UNK, UNK
     Dates: end: 20070718
  5. DOLASETRON MESYLATE [Concomitant]
     Dosage: UNK UNK, UNK
     Dates: end: 20070718

REACTIONS (1)
  - Death [Fatal]
